FAERS Safety Report 8598056-8 (Version None)
Quarter: 2012Q3

REPORT INFORMATION
  Report Type: 
  Country: None (occurrence: None)
  Receive Date: 20120816
  Receipt Date: 20120807
  Transmission Date: 20120928
  Serious: Yes (Other)
  Sender: FDA-Public Use
  Company Number: JP-PFIZER INC-2012188547

PATIENT
  Age: 81 Year
  Sex: Male
  Weight: 50.8 kg

DRUGS (1)
  1. UNASYN [Suspect]
     Dosage: UNK

REACTIONS (1)
  - BLOOD PRESSURE DECREASED [None]
